FAERS Safety Report 6303515-4 (Version None)
Quarter: 2009Q3

REPORT INFORMATION
  Report Type: 
  Country: None (occurrence: None)
  Receive Date: 20090810
  Receipt Date: 20090731
  Transmission Date: 20100115
  Serious: Yes (Hospitalization, Other)
  Sender: FDA-Public Use
  Company Number: US-ABBOTT-09P-163-0588602-00

PATIENT

DRUGS (3)
  1. SYNTHROID [Suspect]
     Indication: HYPOTHYROIDISM
     Route: 048
     Dates: start: 19900101, end: 19900101
  2. SYNTHROID [Suspect]
     Route: 048
     Dates: start: 19900101, end: 19900101
  3. SYNTHROID [Suspect]
     Indication: HYPOTHYROIDISM
     Dates: start: 19900101

REACTIONS (4)
  - ABASIA [None]
  - FATIGUE [None]
  - ILL-DEFINED DISORDER [None]
  - SPINAL CORD NEOPLASM [None]
